FAERS Safety Report 22366407 (Version 1)
Quarter: 2023Q2

REPORT INFORMATION
  Report Type: Spontaneous
  Country: US (occurrence: None)
  Receive Date: 20230524
  Receipt Date: 20230524
  Transmission Date: 20230721
  Serious: Yes (Life-Threatening, Hospitalization, Other)
  Sender: FDA-Public Use
  Company Number: None

PATIENT
  Age: 28 Year
  Sex: Male
  Weight: 78.3 kg

DRUGS (11)
  1. BUPROPION [Suspect]
     Active Substance: BUPROPION
     Indication: Depression
     Dosage: 1 CAPSULE TWICE A DAY ORAL
     Route: 048
  2. BUPROPION [Suspect]
     Active Substance: BUPROPION
     Indication: Attention deficit hyperactivity disorder
  3. CLONAZEPAM [Suspect]
     Active Substance: CLONAZEPAM
     Indication: Panic disorder
     Dosage: 1 TABLET TWICE A DAY ORAL
     Route: 048
  4. CLONAZEPAM [Suspect]
     Active Substance: CLONAZEPAM
     Indication: Agoraphobia
  5. CLONAZEPAM [Suspect]
     Active Substance: CLONAZEPAM
     Indication: Anxiety
  6. CANNABIS SATIVA SUBSP. INDICA TOP [Concomitant]
     Active Substance: CANNABIS SATIVA SUBSP. INDICA TOP
  7. CLONAZEPAM [Concomitant]
     Active Substance: CLONAZEPAM
  8. BUPROPION [Concomitant]
     Active Substance: BUPROPION
  9. Men^s multivitamin [Concomitant]
  10. KRILL OIL [Concomitant]
     Active Substance: DIETARY SUPPLEMENT\KRILL OIL
  11. FISH OIL [Concomitant]
     Active Substance: FISH OIL

REACTIONS (10)
  - Rash [None]
  - Palpitations [None]
  - Nightmare [None]
  - Depression [None]
  - Anxiety [None]
  - Dysgeusia [None]
  - Pruritus [None]
  - Pruritus [None]
  - Illogical thinking [None]
  - Drug withdrawal syndrome [None]

NARRATIVE: CASE EVENT DATE: 20210113
